FAERS Safety Report 7749436-1 (Version None)
Quarter: 2011Q3

REPORT INFORMATION
  Report Type: 
  Country: None (occurrence: None)
  Receive Date: 20110825
  Receipt Date: 20110628
  Transmission Date: 20111222
  Serious: No
  Sender: FDA-Public Use
  Company Number: 330865

PATIENT
  Age: 54 Year
  Sex: Female

DRUGS (2)
  1. METFORMIN HCL [Concomitant]
  2. VICTOZA [Suspect]
     Indication: TYPE 2 DIABETES MELLITUS
     Dosage: 0.6 MG, QD, SUBCUTANEOUS ; 1.8 MG, QD, SUBCUTANEOUS

REACTIONS (1)
  - INJECTION SITE ERYTHEMA [None]
